FAERS Safety Report 22523787 (Version 1)
Quarter: 2023Q2

REPORT INFORMATION
  Report Type: Spontaneous
  Country: US (occurrence: None)
  Receive Date: 20230606
  Receipt Date: 20230606
  Transmission Date: 20230721
  Serious: No
  Sender: FDA-Public Use
  Company Number: US-Hikma Pharmaceuticals USA Inc.-US-H14001-22-02319

PATIENT
  Age: 85 Year
  Sex: Female

DRUGS (2)
  1. FLUTICASONE [Suspect]
     Active Substance: FLUTICASONE
     Indication: Nasal congestion
     Dosage: ONE SPRAY IN EACH NOSTRIL
     Route: 045
     Dates: start: 20220828, end: 20220828
  2. FLUTICASONE [Suspect]
     Active Substance: FLUTICASONE
     Indication: Sneezing

REACTIONS (2)
  - Cough [Not Recovered/Not Resolved]
  - Underdose [Unknown]

NARRATIVE: CASE EVENT DATE: 20220828
